FAERS Safety Report 8396938-3 (Version None)
Quarter: 2012Q2

REPORT INFORMATION
  Report Type: 
  Country: None (occurrence: None)
  Receive Date: 20120530
  Receipt Date: 20120524
  Transmission Date: 20120825
  Serious: No
  Sender: FDA-Public Use
  Company Number: US-PFIZER INC-2012126362

PATIENT
  Sex: Female

DRUGS (8)
  1. SPIRIVA [Suspect]
     Dosage: UNK
  2. PROVENTIL [Suspect]
     Dosage: UNK
  3. CYMBALTA [Suspect]
     Dosage: UNK
  4. ADVAIR DISKUS 100/50 [Suspect]
     Dosage: UNK
  5. SYNTHROID [Suspect]
     Dosage: UNK
  6. ALLEGRA [Suspect]
     Dosage: UNK
  7. CLARINEX [Suspect]
     Indication: SINUSITIS
     Dosage: UNK
     Dates: start: 20110101
  8. LYRICA [Suspect]
     Dosage: UNK

REACTIONS (3)
  - SWOLLEN TONGUE [None]
  - OFF LABEL USE [None]
  - TONGUE ULCERATION [None]
